FAERS Safety Report 5370059-6 (Version None)
Quarter: 2007Q2

REPORT INFORMATION
  Report Type: 
  Country: None (occurrence: None)
  Receive Date: 20070613
  Receipt Date: 20060412
  Transmission Date: 20071010
  Serious: Yes (Other)
  Sender: FDA-Public Use
  Company Number: WAES 0604USA01993

PATIENT
  Age: 65 Year
  Sex: Female

DRUGS (1)
  1. OS COSOPT 2.00/0.5% [Suspect]
     Indication: GLAUCOMA
     Dosage: OPHT
     Route: 047

REACTIONS (2)
  - ERYTHEMA OF EYELID [None]
  - EYELID OEDEMA [None]
